FAERS Safety Report 20290225 (Version 3)
Quarter: 2023Q2

REPORT INFORMATION
  Report Type: Spontaneous
  Country: JP (occurrence: JP)
  Receive Date: 20220104
  Receipt Date: 20230426
  Transmission Date: 20230722
  Serious: Yes (Hospitalization)
  Sender: FDA-Public Use
  Company Number: JP-CHUGAI-2021034060

PATIENT
  Age: 75 Year
  Sex: Male
  Weight: 61.8 kg

DRUGS (17)
  1. TECENTRIQ [Suspect]
     Active Substance: ATEZOLIZUMAB
     Indication: Hepatocellular carcinoma
     Dosage: 1200 MILLIGRAM, ONCE/3WEEKS
     Route: 041
     Dates: start: 20210928, end: 20211109
  2. TECENTRIQ [Suspect]
     Active Substance: ATEZOLIZUMAB
     Dosage: 1200 MILLIGRAM, ONCE/3WEEKS
     Route: 041
     Dates: end: 20230221
  3. AVASTIN [Suspect]
     Active Substance: BEVACIZUMAB
     Indication: Hepatocellular carcinoma
     Dosage: 900 MILLIGRAM, ONCE/3WEEKS
     Route: 041
     Dates: start: 20210928, end: 20211109
  4. AVASTIN [Suspect]
     Active Substance: BEVACIZUMAB
     Dosage: ONCE/3WEEKS
     Route: 041
  5. TELMISARTAN [Concomitant]
     Active Substance: TELMISARTAN
     Dosage: UNK
     Route: 065
     Dates: end: 20230329
  6. NIFEDIPINE [Concomitant]
     Active Substance: NIFEDIPINE
     Dosage: UNK
     Route: 065
  7. HALCION [Concomitant]
     Active Substance: TRIAZOLAM
     Dosage: UNK
     Route: 065
  8. VONOPRAZAN FUMARATE [Concomitant]
     Active Substance: VONOPRAZAN FUMARATE
     Dosage: UNK
     Route: 065
  9. BELSOMRA [Concomitant]
     Active Substance: SUVOREXANT
     Dosage: UNK
     Route: 065
  10. TRAZODONE HYDROCHLORIDE [Concomitant]
     Active Substance: TRAZODONE HYDROCHLORIDE
     Dosage: UNK
     Route: 065
  11. PREDONINE [Concomitant]
     Active Substance: PREDNISOLONE
     Dosage: 10MG/DAY
     Route: 048
  12. PREDONINE [Concomitant]
     Active Substance: PREDNISOLONE
     Dosage: 50MG/DAY
     Route: 048
     Dates: start: 20230316
  13. PREDONINE [Concomitant]
     Active Substance: PREDNISOLONE
     Dosage: 40MG/DAY
     Route: 048
     Dates: start: 20230404
  14. PREDONINE [Concomitant]
     Active Substance: PREDNISOLONE
     Dosage: 30MG/DAY
     Route: 048
     Dates: start: 20230411
  15. PREDONINE [Concomitant]
     Active Substance: PREDNISOLONE
     Dosage: UNK
  16. SITAGLIPTIN [Concomitant]
     Active Substance: SITAGLIPTIN
     Dosage: UNK
     Route: 065
  17. METFORMIN HYDROCHLORIDE [Concomitant]
     Active Substance: METFORMIN HYDROCHLORIDE
     Dosage: UNK
     Route: 065

REACTIONS (3)
  - Liver disorder [Recovering/Resolving]
  - Liver disorder [Recovering/Resolving]
  - Protein urine [Unknown]

NARRATIVE: CASE EVENT DATE: 20211130
